FAERS Safety Report 5664990-1 (Version None)
Quarter: 2008Q1

REPORT INFORMATION
  Report Type: 
  Country: None (occurrence: None)
  Receive Date: 20080314
  Receipt Date: 20080304
  Transmission Date: 20080703
  Serious: Yes (Hospitalization, Other)
  Sender: FDA-Public Use
  Company Number: US-ABBOTT-08P-163-0440855-00

PATIENT
  Sex: Female
  Weight: 71.278 kg

DRUGS (7)
  1. HUMIRA [Suspect]
     Indication: PSORIATIC ARTHROPATHY
     Route: 058
     Dates: start: 20010101, end: 20080119
  2. HUMIRA [Suspect]
     Dates: end: 20080101
  3. LEVOFLOXACIN [Suspect]
     Indication: SEPSIS
     Dates: start: 20080201
  4. CLINDAMYCIN HCL [Suspect]
     Indication: OSTEOMYELITIS
     Route: 042
     Dates: start: 20080201
  5. CEFTAZIDIME SODIUM [Suspect]
     Indication: OSTEOMYELITIS
     Route: 042
     Dates: start: 20080201
  6. DAPTOMYCIN [Suspect]
     Indication: OSTEOMYELITIS
     Route: 042
     Dates: start: 20080201
  7. TOPROMAX [Concomitant]
     Indication: DRUG USE FOR UNKNOWN INDICATION

REACTIONS (15)
  - BONE DISORDER [None]
  - ENDODONTIC PROCEDURE [None]
  - HAEMORRHAGE [None]
  - HEPATIC ENZYME INCREASED [None]
  - IMPAIRED HEALING [None]
  - OSTEOMYELITIS [None]
  - PAIN [None]
  - PLATELET COUNT DECREASED [None]
  - PSORIATIC ARTHROPATHY [None]
  - RED BLOOD CELL COUNT DECREASED [None]
  - SEPSIS [None]
  - SINUS PERFORATION [None]
  - SWELLING FACE [None]
  - TOOTH ABSCESS [None]
  - WHITE BLOOD CELL COUNT DECREASED [None]
